FAERS Safety Report 13990555 (Version 2)
Quarter: 2017Q4

REPORT INFORMATION
  Report Type: Other
  Country: NL (occurrence: NL)
  Receive Date: 20170920
  Receipt Date: 20171117
  Transmission Date: 20180321
  Serious: Yes (Hospitalization, Other)
  Sender: FDA-Public Use
  Company Number: NL-APOTEX-2017AP018647

PATIENT
  Age: 30 Year
  Sex: Female

DRUGS (8)
  1. LACTULOSE. [Concomitant]
     Active Substance: LACTULOSE
     Indication: PRODUCT USED FOR UNKNOWN INDICATION
     Dosage: 10.5 G, QD
     Route: 065
     Dates: start: 20160912
  2. OXYCODON HCL APOTEX, TABLET MET VERLENGDE AFGIFTE [Interacting]
     Active Substance: OXYCODONE HYDROCHLORIDE
     Indication: PRODUCT USED FOR UNKNOWN INDICATION
     Dosage: 10 MG, BID
     Route: 065
     Dates: start: 20170731
  3. NAPROXEN. [Concomitant]
     Active Substance: NAPROXEN
     Indication: PRODUCT USED FOR UNKNOWN INDICATION
     Dosage: 500 MG, BID
     Route: 065
     Dates: start: 20160310
  4. OXYCODONE [Interacting]
     Active Substance: OXYCODONE
     Indication: PRODUCT USED FOR UNKNOWN INDICATION
     Dosage: 5 MG, UNK
     Route: 065
     Dates: start: 20160912
  5. ETINILESTRADIOL+LEVONORGESTREL [Concomitant]
     Indication: PRODUCT USED FOR UNKNOWN INDICATION
     Dosage: 180 UG, QD
     Route: 065
     Dates: start: 20150814
  6. OMECAT [Concomitant]
     Indication: PRODUCT USED FOR UNKNOWN INDICATION
     Dosage: 40 MG, QD
     Route: 065
     Dates: start: 20160310
  7. PAROXETINE TABLET [Suspect]
     Active Substance: PAROXETINE
     Indication: DEPRESSION
     Dosage: 20 MG, SINGLE
     Route: 065
     Dates: start: 20170816, end: 20170816
  8. PARACETAMOL [Concomitant]
     Active Substance: ACETAMINOPHEN
     Indication: PRODUCT USED FOR UNKNOWN INDICATION
     Dosage: 1000 MG, QID
     Route: 065
     Dates: start: 20170516

REACTIONS (2)
  - Drug interaction [Unknown]
  - Serotonin syndrome [Recovering/Resolving]

NARRATIVE: CASE EVENT DATE: 20170816
